FAERS Safety Report 13648119 (Version 1)
Quarter: 2017Q2

REPORT INFORMATION
  Report Type: Report from Study
  Country: BR (occurrence: BR)
  Receive Date: 20170613
  Receipt Date: 20170613
  Transmission Date: 20170830
  Serious: Yes (Other)
  Sender: FDA-Public Use
  Company Number: PHHY2017BR085187

PATIENT
  Sex: Female

DRUGS (1)
  1. EXELON PATCH [Suspect]
     Active Substance: RIVASTIGMINE
     Indication: TREMOR
     Dosage: 9.5 MG, QD, PATCH (10 CM2)
     Route: 062

REACTIONS (4)
  - Dysphagia [Unknown]
  - Drooling [Unknown]
  - Dementia Alzheimer^s type [Unknown]
  - Product use in unapproved indication [Unknown]
